FAERS Safety Report 9239582 (Version 1)
Quarter: 2013Q2

REPORT INFORMATION
  Report Type: Spontaneous
  Country: US (occurrence: US)
  Receive Date: 20130418
  Receipt Date: 20130418
  Transmission Date: 20140414
  Serious: No
  Sender: FDA-Public Use
  Company Number: US-COVIDIEN/TYCO HEALTHCARE/MALLINCKRODT-T201202973

PATIENT
  Age: 58 Year
  Sex: Female
  Weight: 59.86 kg

DRUGS (2)
  1. METHADOSE [Suspect]
     Indication: DRUG DEPENDENCE
     Dosage: 65 MG, QD
     Route: 048
     Dates: start: 20120716, end: 20120725
  2. METHADOSE [Suspect]
     Dosage: 60 MG, UNK
     Dates: start: 20120725

REACTIONS (3)
  - Blood pressure increased [Recovered/Resolved]
  - Feeling abnormal [Recovered/Resolved]
  - Headache [Recovered/Resolved]
